FAERS Safety Report 16276593 (Version 3)
Quarter: 2019Q2

REPORT INFORMATION
  Report Type: Spontaneous
  Country: US (occurrence: US)
  Receive Date: 20190506
  Receipt Date: 20190625
  Transmission Date: 20190711
  Serious: Yes (Other)
  Sender: FDA-Public Use
  Company Number: US-PFIZER INC-2019187029

PATIENT
  Age: 87 Year
  Sex: Female
  Weight: 58.6 kg

DRUGS (2)
  1. BUPRENORPHINE. [Concomitant]
     Active Substance: BUPRENORPHINE
     Indication: PAIN
     Dosage: 8 MG, 3X/DAY
     Dates: start: 201901
  2. XELJANZ XR [Suspect]
     Active Substance: TOFACITINIB CITRATE
     Indication: RHEUMATOID ARTHRITIS
     Dosage: 11 MG, DAILY (EVERY DAY AS DIRECTED)
     Route: 048
     Dates: start: 20190103

REACTIONS (3)
  - Memory impairment [Unknown]
  - Immune system disorder [Unknown]
  - Pneumonia [Recovered/Resolved]

NARRATIVE: CASE EVENT DATE: 20190323
